FAERS Safety Report 9617483 (Version 1)
Quarter: 2013Q4

REPORT INFORMATION
  Report Type: Spontaneous
  Country: US (occurrence: None)
  Receive Date: 20131009
  Receipt Date: 20131009
  Transmission Date: 20140711
  Serious: Yes (Other)
  Sender: FDA-Public Use
  Company Number: 2013US002582

PATIENT
  Age: 67 Year
  Sex: Female
  Weight: 52 kg

DRUGS (9)
  1. ICLUSIG [Suspect]
     Indication: ACUTE LYMPHOCYTIC LEUKAEMIA
     Route: 048
     Dates: start: 20130521
  2. STOOL SOFTERNER (DOCUSATE SODIUM) [Concomitant]
  3. LAXATIVES [Concomitant]
  4. CARVEDILOL (CARVEDILOL) [Concomitant]
  5. FUROSEMIDE (FUROSEMIDE) [Concomitant]
  6. GABAPENTIN (GABAPENTIN) [Concomitant]
  7. LISINOPRIL (LISINOPRIL) [Concomitant]
  8. HYDROCODONE (HYDROCODONE) [Concomitant]
  9. INSULIN (INSULIN) [Concomitant]

REACTIONS (2)
  - Patella fracture [None]
  - Fall [None]
